FAERS Safety Report 22186832 (Version 1)
Quarter: 2023Q2

REPORT INFORMATION
  Report Type: Report from Study
  Country: US (occurrence: US)
  Receive Date: 20230407
  Receipt Date: 20230407
  Transmission Date: 20230722
  Serious: Yes (Life-Threatening, Hospitalization)
  Sender: FDA-Public Use
  Company Number: US-GLAXOSMITHKLINE-US2022GSK015037

PATIENT

DRUGS (17)
  1. DOSTARLIMAB [Suspect]
     Active Substance: DOSTARLIMAB
     Indication: Breast cancer
     Dosage: 500 MG, Z (EVERY 3 WEEKS X 4 DOSES)
     Route: 042
     Dates: start: 20210922, end: 20211013
  2. PACLITAXEL [Suspect]
     Active Substance: PACLITAXEL
     Indication: Breast cancer
     Dosage: 300 MG/M2, Z- (DAILY DAYS 1, 2, 3)
     Route: 048
     Dates: start: 20210922, end: 20211015
  3. PACLITAXEL [Suspect]
     Active Substance: PACLITAXEL
     Dosage: 15 MG (DAILY DAYS 1, 2, 3)
     Route: 048
     Dates: start: 20210922, end: 20211015
  4. PACLITAXEL [Suspect]
     Active Substance: PACLITAXEL
     Dosage: 165 MG/M2
     Route: 048
     Dates: start: 20211020, end: 20211020
  5. CARBOPLATIN [Suspect]
     Active Substance: CARBOPLATIN
     Indication: Breast cancer
     Dosage: UNK
     Route: 042
     Dates: start: 20211117, end: 20211117
  6. CARBOPLATIN [Suspect]
     Active Substance: CARBOPLATIN
     Dosage: UNK
     Route: 042
     Dates: start: 20211229, end: 20211229
  7. PACLITAXEL [Suspect]
     Active Substance: PACLITAXEL
     Indication: Breast cancer
     Dosage: 117 MG/M2 (WEEKLY X 7 MORE DOSES)
     Route: 042
     Dates: start: 20211110, end: 20211110
  8. PACLITAXEL [Suspect]
     Active Substance: PACLITAXEL
     Dosage: 117 MG/M2 (WEEKLY X 7 MORE DOSES)
     Route: 042
     Dates: start: 20211229, end: 20211229
  9. CYTOXAN [Suspect]
     Active Substance: CYCLOPHOSPHAMIDE
     Indication: Breast cancer
     Dosage: 480 MG/M2, Q3W
     Route: 042
     Dates: start: 20220204
  10. ADRIAMYCIN [Suspect]
     Active Substance: DOXORUBICIN HYDROCHLORIDE
     Indication: Breast cancer
     Dosage: 48 MG/M2, Q3W
     Route: 042
     Dates: start: 20220204
  11. UNSPECIFIED INGREDIENT [Suspect]
     Active Substance: UNSPECIFIED INGREDIENT
     Indication: Breast cancer
     Dosage: 600MG/60MG (EVERY 2 WEEKS X 4 DOSES)
     Route: 042
     Dates: start: 20220114, end: 20220114
  12. TAXOL [Concomitant]
     Active Substance: PACLITAXEL
     Indication: Breast cancer
     Dosage: UNK, C7 D1
     Route: 042
     Dates: start: 20211117
  13. KEFLEX [Concomitant]
     Active Substance: CEPHALEXIN
     Indication: Urinary tract infection
     Route: 048
  14. NEULASTA [Concomitant]
     Active Substance: PEGFILGRASTIM
     Indication: Product used for unknown indication
     Dosage: UNK
     Dates: start: 20220114
  15. ENCEQUIDAR MESYLATE MONOHYDRATE [Suspect]
     Active Substance: ENCEQUIDAR MESYLATE MONOHYDRATE
  16. ENCEQUIDAR MESYLATE MONOHYDRATE [Suspect]
     Active Substance: ENCEQUIDAR MESYLATE MONOHYDRATE
  17. ENCEQUIDAR MESYLATE MONOHYDRATE [Suspect]
     Active Substance: ENCEQUIDAR MESYLATE MONOHYDRATE

REACTIONS (2)
  - Febrile neutropenia [Recovered/Resolved]
  - Febrile neutropenia [Recovered/Resolved]

NARRATIVE: CASE EVENT DATE: 20220122
